FAERS Safety Report 12671023 (Version 1)
Quarter: 2016Q3

REPORT INFORMATION
  Report Type: Spontaneous
  Country: US (occurrence: US)
  Receive Date: 20160822
  Receipt Date: 20160822
  Transmission Date: 20161109
  Serious: Yes (Other)
  Sender: FDA-Public Use
  Company Number: US-AUROBINDO-AUR-APL-2016-10412

PATIENT

DRUGS (3)
  1. DULOXETINE. [Suspect]
     Active Substance: DULOXETINE
     Indication: DEPRESSION
     Route: 065
  2. FLUTICASONE PROPIONATE. [Interacting]
     Active Substance: FLUTICASONE PROPIONATE
     Indication: COLITIS ULCERATIVE
  3. FLUTICASONE PROPIONATE. [Interacting]
     Active Substance: FLUTICASONE PROPIONATE
     Indication: RHINITIS ALLERGIC
     Dosage: 50 ?G/ACT 2 PUFFS/NOSTRILS
     Route: 045

REACTIONS (11)
  - Contusion [Unknown]
  - Oedema peripheral [Unknown]
  - Hypercorticoidism [Unknown]
  - Weight increased [Unknown]
  - Muscular weakness [Unknown]
  - Fatigue [Unknown]
  - Night sweats [Unknown]
  - Cushing^s syndrome [Unknown]
  - Central obesity [Unknown]
  - Myopathy [Unknown]
  - Drug interaction [Unknown]
